FAERS Safety Report 4697170-7 (Version None)
Quarter: 2005Q2

REPORT INFORMATION
  Report Type: 
  Country: None (occurrence: None)
  Receive Date: 20050622
  Receipt Date: 20050429
  Transmission Date: 20051028
  Serious: Yes (Hospitalization, Other)
  Sender: FDA-Public Use
  Company Number: PHNU2005DE01822

PATIENT
  Sex: Male
  Weight: 85 kg

DRUGS (2)
  1. ZOMETA [Suspect]
     Indication: METASTASES TO BONE
     Dosage: 4 MG, ONCE/SINGLE
     Route: 042
     Dates: start: 20050315, end: 20050315
  2. ZOMETA [Suspect]
     Dosage: 4 MG, ONCE/SINGLE
     Route: 042
     Dates: start: 20050210, end: 20050210

REACTIONS (5)
  - ANGIONEUROTIC OEDEMA [None]
  - CEREBRAL DISORDER [None]
  - DIZZINESS [None]
  - PARAESTHESIA [None]
  - SWELLING FACE [None]
